FAERS Safety Report 16897184 (Version 1)
Quarter: 2019Q4

REPORT INFORMATION
  Report Type: Spontaneous
  Country: US (occurrence: US)
  Receive Date: 20191009
  Receipt Date: 20191009
  Transmission Date: 20200122
  Serious: No
  Sender: FDA-Public Use
  Company Number: US-DRREDDYS-USA/USA/18/0103887

PATIENT
  Sex: Male
  Weight: 59.1 kg

DRUGS (1)
  1. SUMATRIPTAN SUCCINATE TABLETS [Suspect]
     Active Substance: SUMATRIPTAN SUCCINATE
     Indication: MIGRAINE
     Route: 065

REACTIONS (4)
  - Muscle fatigue [Unknown]
  - Product complaint [Unknown]
  - Drug ineffective [Unknown]
  - Extra dose administered [Unknown]
